FAERS Safety Report 5384751-0 (Version None)
Quarter: 2007Q3

REPORT INFORMATION
  Report Type: 
  Country: None (occurrence: None)
  Receive Date: 20070706
  Receipt Date: 20070521
  Transmission Date: 20080115
  Serious: No
  Sender: FDA-Public Use
  Company Number: PHEH2007US06845

PATIENT
  Age: 69 Year
  Sex: Male

DRUGS (6)
  1. TEKTURNA [Suspect]
     Indication: HYPERTENSION
     Dosage: 150 MG, 1/2 TABLER BID; 75 MG, BID
     Dates: start: 20070401
  2. TEKTURNA [Suspect]
     Indication: HYPERTENSION
     Dosage: 150 MG, 1/2 TABLER BID; 75 MG, BID
     Dates: start: 20070401
  3. FLEXERIL [Concomitant]
  4. LABETALOL HCL [Concomitant]
  5. CHROMAGEN FORTE (ASCORBIC ACID, CYANOCOBALAMIN, FERROUS FUMARATE, FOLI [Concomitant]
  6. POLARAMINE REPETABS (DEXCHLORPHENIRAMINE MALEATE) [Concomitant]

REACTIONS (2)
  - DIZZINESS [None]
  - FEELING ABNORMAL [None]
